FAERS Safety Report 7788253-3 (Version None)
Quarter: 2011Q3

REPORT INFORMATION
  Report Type: 
  Country: None (occurrence: None)
  Receive Date: 20110930
  Receipt Date: 20110919
  Transmission Date: 20111222
  Serious: Yes (Other)
  Sender: FDA-Public Use
  Company Number: US-ELI_LILLY_AND_COMPANY-US201103001569

PATIENT
  Sex: Female

DRUGS (5)
  1. FORTEO [Suspect]
     Dosage: 20 UG, QD
     Route: 065
  2. FORTEO [Suspect]
     Dosage: 20 UG, QD
     Route: 065
  3. FORTEO [Suspect]
     Dosage: 20 UG, QD
     Route: 065
  4. FORTEO [Suspect]
     Indication: OSTEOPOROSIS
     Dosage: 20 UG, QD
     Route: 065
     Dates: start: 20110201
  5. FORTEO [Suspect]
     Dosage: 20 UG, QD

REACTIONS (8)
  - DIZZINESS [None]
  - INJECTION SITE PAIN [None]
  - KNEE ARTHROPLASTY [None]
  - ABDOMINAL DISTENSION [None]
  - WEIGHT LOSS POOR [None]
  - MUSCLE SPASMS [None]
  - INJECTION SITE HAEMATOMA [None]
  - CONSTIPATION [None]
